FAERS Safety Report 20453371 (Version 10)
Quarter: 2023Q2

REPORT INFORMATION
  Report Type: Report from Study
  Country: NO (occurrence: NO)
  Receive Date: 20220210
  Receipt Date: 20230517
  Transmission Date: 20230722
  Serious: Yes (Hospitalization)
  Sender: FDA-Public Use
  Company Number: NO-BAYER-2021A239749

PATIENT
  Age: 87 Year
  Sex: Male

DRUGS (24)
  1. EYLEA [Suspect]
     Active Substance: AFLIBERCEPT
     Indication: Neovascular age-related macular degeneration
     Dosage: 50 UL, Q4WK OD EYE, SOLUTION FOR INJECTION, 40 MG/ML
     Dates: start: 20191206, end: 20191206
  2. EYLEA [Suspect]
     Active Substance: AFLIBERCEPT
     Dosage: 50 UL, Q8WK OD EYE SOLUTION FOR INJECTION, 40 MG/ML
     Dates: start: 20200129, end: 20200129
  3. EYLEA [Suspect]
     Active Substance: AFLIBERCEPT
     Dosage: 50 UL, Q8WK OD EYE SOLUTION FOR INJECTION, 40 MG/ML
     Dates: start: 20200417, end: 20200417
  4. EYLEA [Suspect]
     Active Substance: AFLIBERCEPT
     Dosage: 50 UL, INTERVAL OF NEXT INJECTION VISIT: 10, SOLUTION FOR INJECTION, 40 MG/ML
     Dates: start: 20200615, end: 20200615
  5. EYLEA [Suspect]
     Active Substance: AFLIBERCEPT
     Dosage: 50 UL, Q4WK OD EYE. INTERVAL REDUCED DUE TO NEW FLUID, SOLUTION FOR INJECTION, 40 MG/ML
     Dates: start: 20200827, end: 20200827
  6. EYLEA [Suspect]
     Active Substance: AFLIBERCEPT
     Dosage: 50 UL, Q4WK OD EYE SOLUTION FOR INJECTION, 40 MG/ML
     Dates: start: 20200924, end: 20200924
  7. EYLEA [Suspect]
     Active Substance: AFLIBERCEPT
     Dosage: 50 UL, Q8WK OD EYE SOLUTION FOR INJECTION, 40 MG/ML
     Dates: start: 20210511, end: 20210511
  8. EYLEA [Suspect]
     Active Substance: AFLIBERCEPT
     Dosage: 50 UL, INTERVAL OF NEXT INJECTION VISIT: 10, SOLUTION FOR INJECTION, 40 MG/ML
     Dates: start: 20210730, end: 20210730
  9. EYLEA [Suspect]
     Active Substance: AFLIBERCEPT
     Dosage: 50 UL, Q8WK OD EYE, SOLUTION FOR INJECTION, 40 MG/ML
     Dates: start: 20211008, end: 20211008
  10. EYLEA [Suspect]
     Active Substance: AFLIBERCEPT
     Dosage: 50 UL, Q8WK OD EYE, SOLUTION FOR INJECTION, 40 MG/ML
     Dates: start: 20210118, end: 20210118
  11. EYLEA [Suspect]
     Active Substance: AFLIBERCEPT
     Dosage: 50 UL, Q8WK OD EYE SOLUTION FOR INJECTION, 40 MG/ML
     Dates: start: 20210316, end: 20210316
  12. EYLEA [Suspect]
     Active Substance: AFLIBERCEPT
     Dosage: 50 ?L, INTERVAL OF NEXT INJECTION VISIT: 10, SOLUTION FOR INJECTION, 40 MG/ML
     Dates: start: 20211201, end: 20211201
  13. EYLEA [Suspect]
     Active Substance: AFLIBERCEPT
     Dosage: UNK, SOLUTION FOR INJECTION, 40 MG/ML
     Dates: start: 20211211
  14. EYLEA [Suspect]
     Active Substance: AFLIBERCEPT
     Dosage: UNK, SOLUTION FOR INJECTION, 40 MG/ML
     Dates: start: 20211212
  15. EYLEA [Suspect]
     Active Substance: AFLIBERCEPT
     Dosage: UNK, SOLUTION FOR INJECTION, 40 MG/ML
     Dates: start: 20211213
  16. EYLEA [Suspect]
     Active Substance: AFLIBERCEPT
     Dosage: UNK, SOLUTION FOR INJECTION, 40MG/ML
  17. EYLEA [Suspect]
     Active Substance: AFLIBERCEPT
     Dosage: UNK, SOLUTION FOR INJECTION, 40 MG/ML
     Dates: start: 20211214
  18. EYLEA [Suspect]
     Active Substance: AFLIBERCEPT
     Dosage: UNK, SOLUTION FOR INJECTION, 40 MG/ML
     Dates: start: 20211220
  19. EYLEA [Suspect]
     Active Substance: AFLIBERCEPT
     Dosage: UNK, SOLUTION FOR INJECTION, 40 MG/ML
     Dates: start: 20220103
  20. EYLEA [Suspect]
     Active Substance: AFLIBERCEPT
     Dosage: UNK, SOLUTION FOR INJECTION, 40 MG/ML
     Dates: start: 20220126
  21. EYLEA [Suspect]
     Active Substance: AFLIBERCEPT
     Dosage: UNK SOLUTION FOR INJECTION, 40 MG/ML
     Dates: start: 20220223
  22. EYLEA [Suspect]
     Active Substance: AFLIBERCEPT
     Dosage: UNK, SOLUTION FOR INJECTION, 40 MG/ML
     Dates: start: 20220330
  23. EYLEA [Suspect]
     Active Substance: AFLIBERCEPT
     Dosage: 50 UL, SOLUTION FOR INJECTION, 40 MG/ML
     Dates: start: 20220620, end: 20220620
  24. ARTIFICIAL TEARS [PROPYLENE GLYCOL] [Concomitant]
     Indication: Dry eye
     Dosage: 4 GTT, QD
     Route: 031
     Dates: start: 20220330

REACTIONS (5)
  - Vitrectomy [Recovered/Resolved]
  - Iridectomy [Recovered/Resolved]
  - Anterior capsular rupture [Recovered/Resolved]
  - Posterior capsule rupture [Recovered/Resolved]
  - Cataract operation [Recovered/Resolved]

NARRATIVE: CASE EVENT DATE: 20210827
